FAERS Safety Report 22657801 (Version 1)
Quarter: 2023Q2

REPORT INFORMATION
  Report Type: Report from Study
  Country: EG (occurrence: EG)
  Receive Date: 20230630
  Receipt Date: 20230630
  Transmission Date: 20230722
  Serious: Yes (Other)
  Sender: FDA-Public Use
  Company Number: EG-002147023-NVSC2023EG147783

PATIENT
  Age: 27 Year
  Sex: Female

DRUGS (8)
  1. COSENTYX [Suspect]
     Active Substance: SECUKINUMAB
     Indication: Psoriatic arthropathy
     Dosage: 150 MG, WEEKLY FOR 1 MONTH AS LOADING DOSE
     Route: 058
     Dates: start: 20220705, end: 202209
  2. COSENTYX [Suspect]
     Active Substance: SECUKINUMAB
     Indication: Skin plaque
  3. METHOTREXATE [Concomitant]
     Active Substance: METHOTREXATE
     Indication: Psoriatic arthropathy
     Dosage: UNK (1 CM WEEKLY FOR LIFELONG)
     Route: 065
     Dates: start: 202202
  4. BETAMETHASONE [Concomitant]
     Active Substance: BETAMETHASONE
     Indication: Blister
     Dosage: UNK, (AS THE PUS RECOVERED (WAS USED AS  PROPHYLAXIS WHENEVER THE PATIENT SUSPECTED PUS) EVERY 2 HOU
     Route: 065
     Dates: start: 2022
  5. AUGMENTIN [Concomitant]
     Active Substance: AMOXICILLIN\CLAVULANATE POTASSIUM
     Indication: Antibiotic therapy
     Dosage: 1 G, QD FOR 1 WEEK
     Route: 048
     Dates: start: 20221122, end: 20221129
  6. DICLOFENAC [Concomitant]
     Active Substance: DICLOFENAC
     Indication: Pain
     Dosage: 150 MG, (WHEN NEEDED WHEN IN PAIN)
     Route: 048
     Dates: start: 20220904, end: 20221204
  7. MINOPHYLLINE [Concomitant]
     Indication: Bronchial disorder
     Dosage: UNK UNK, QD
     Route: 048
     Dates: end: 202301
  8. MINOPHYLLINE [Concomitant]
     Indication: Dyspnoea

REACTIONS (10)
  - Scar [Recovering/Resolving]
  - Pneumonia [Recovered/Resolved]
  - Spondylitis [Recovered/Resolved]
  - Chest discomfort [Recovered/Resolved]
  - Hypokinesia [Recovered/Resolved]
  - Angina pectoris [Recovered/Resolved]
  - Psoriatic arthropathy [Recovered/Resolved]
  - Skin plaque [Recovered/Resolved]
  - Off label use [Recovered/Resolved]
  - Drug ineffective [Not Recovered/Not Resolved]

NARRATIVE: CASE EVENT DATE: 20220705
